FAERS Safety Report 10332706 (Version 1)
Quarter: 2014Q3

REPORT INFORMATION
  Report Type: Spontaneous
  Country: US (occurrence: US)
  Receive Date: 20140722
  Receipt Date: 20140722
  Transmission Date: 20150326
  Serious: No
  Sender: FDA-Public Use
  Company Number: US-ASTRAZENECA-2013SE77871

PATIENT
  Age: 50 Year
  Sex: Male

DRUGS (6)
  1. SEROQUEL [Suspect]
     Active Substance: QUETIAPINE FUMARATE
     Indication: BIPOLAR DISORDER
     Route: 048
     Dates: end: 20131001
  2. ATIVAN [Concomitant]
     Active Substance: LORAZEPAM
     Dosage: UNKNOWN UNK
     Route: 048
  3. SEROQUEL [Suspect]
     Active Substance: QUETIAPINE FUMARATE
     Indication: BIPOLAR DISORDER
     Route: 048
     Dates: start: 20131001
  4. COGENTIN [Concomitant]
     Active Substance: BENZTROPINE MESYLATE
     Dosage: UNKNOWN UNK
     Route: 048
  5. WELLBUTRIN [Concomitant]
     Active Substance: BUPROPION HYDROCHLORIDE
     Dosage: UNKNOWN UNK
     Route: 048
  6. SEROQUEL [Suspect]
     Active Substance: QUETIAPINE FUMARATE
     Indication: BIPOLAR DISORDER
     Route: 048
     Dates: start: 20131001

REACTIONS (1)
  - Rash pustular [Unknown]

NARRATIVE: CASE EVENT DATE: 20131001
